FAERS Safety Report 5847166-4 (Version None)
Quarter: 2008Q3

REPORT INFORMATION
  Report Type: 
  Country: None (occurrence: None)
  Receive Date: 20080815
  Receipt Date: 20080808
  Transmission Date: 20090109
  Serious: Yes (Disabling, Other)
  Sender: FDA-Public Use
  Company Number: PHHY2008JP14649

PATIENT
  Sex: Female
  Weight: 32 kg

DRUGS (6)
  1. GLEEVEC [Suspect]
     Indication: GASTROINTESTINAL STROMAL TUMOUR
     Dosage: 400 MG/DAY
     Route: 048
     Dates: start: 20080624, end: 20080630
  2. GLEEVEC [Suspect]
     Dosage: 300 MG/DAY
     Route: 048
     Dates: start: 20080701, end: 20080701
  3. RENIVEZE [Concomitant]
     Indication: HYPERTENSION
     Dosage: 5 MG, UNK
     Route: 048
     Dates: start: 20080624, end: 20080630
  4. ALLOPURINOL [Concomitant]
     Indication: PROPHYLAXIS
     Dosage: 500 MG, UNK
     Route: 048
     Dates: start: 20080624, end: 20080701
  5. MUCOSTA [Concomitant]
     Dosage: 300 MG, UNK
     Route: 048
     Dates: start: 20080624, end: 20080701
  6. LACTULOSE [Concomitant]
     Indication: HYPERAMMONAEMIA
     Dosage: 30 DF, UNK
     Route: 048
     Dates: start: 20080526, end: 20080630

REACTIONS (10)
  - ANURIA [None]
  - BLOOD CREATININE INCREASED [None]
  - BLOOD POTASSIUM ABNORMAL [None]
  - BLOOD SODIUM DECREASED [None]
  - BLOOD UREA INCREASED [None]
  - DEHYDRATION [None]
  - OEDEMA [None]
  - PLEURAL EFFUSION [None]
  - RENAL FAILURE ACUTE [None]
  - WHITE BLOOD CELL COUNT INCREASED [None]
